FAERS Safety Report 4994223-0 (Version None)
Quarter: 2006Q2

REPORT INFORMATION
  Report Type: 
  Country: None (occurrence: None)
  Receive Date: 20060503
  Receipt Date: 20060425
  Transmission Date: 20061013
  Serious: Yes (Death)
  Sender: FDA-Public Use
  Company Number: 2006PV012653

PATIENT
  Age: 48 Year
  Sex: Male

DRUGS (3)
  1. BYETTA [Suspect]
     Indication: DIABETES MELLITUS NON-INSULIN-DEPENDENT
     Dosage: UNKNOWN
     Route: 065
     Dates: start: 20060201, end: 20060201
  2. HUMALOG PEN 75/25 [Concomitant]
  3. ACTOS [Concomitant]

REACTIONS (4)
  - DIABETIC COMPLICATION [None]
  - HYPERTENSION [None]
  - NAUSEA [None]
  - VOMITING [None]
